FAERS Safety Report 5203709-5 (Version None)
Quarter: 2007Q1

REPORT INFORMATION
  Report Type: 
  Country: None (occurrence: None)
  Receive Date: 20070105
  Receipt Date: 20070105
  Transmission Date: 20070707
  Serious: No
  Sender: FDA-Public Use
  Company Number: None

PATIENT
  Age: 83 Year
  Sex: Male
  Weight: 91.173 kg

DRUGS (11)
  1. LYRICA [Suspect]
     Indication: NEUROPATHY PERIPHERAL
     Dosage: 75 MG BID PO
     Route: 048
     Dates: start: 20061120, end: 20061130
  2. PROSCAR [Concomitant]
  3. HYDROCHLOROTHIAZIDE [Concomitant]
  4. COZAAR [Concomitant]
  5. HYDRALAZINE HCL [Concomitant]
  6. NORVASC [Concomitant]
  7. METOPROLOL SUCCINATE [Concomitant]
  8. PLAVIX [Concomitant]
  9. ACIPHEX [Concomitant]
  10. ASPIRIN [Concomitant]
  11. M.V.I. [Concomitant]

REACTIONS (5)
  - CARDIAC FAILURE [None]
  - DYSPNOEA [None]
  - FATIGUE [None]
  - OEDEMA PERIPHERAL [None]
  - SOMNOLENCE [None]
